FAERS Safety Report 10401144 (Version 4)
Quarter: 2014Q4

REPORT INFORMATION
  Report Type: Spontaneous
  Country: DE (occurrence: DE)
  Receive Date: 20140822
  Receipt Date: 20141217
  Transmission Date: 20150528
  Serious: Yes (Other)
  Sender: FDA-Public Use
  Company Number: DE-AMGEN-DEUSP2012084107

PATIENT
  Age: 74 Year
  Sex: Female
  Weight: 65 kg

DRUGS (1)
  1. PROLIA [Suspect]
     Active Substance: DENOSUMAB
     Indication: OSTEOPOROSIS
     Dosage: 60 MG, Q6MO
     Route: 058
     Dates: start: 20120816

REACTIONS (43)
  - Diverticulitis [Unknown]
  - Spinal osteoarthritis [Unknown]
  - Stomatitis [Recovered/Resolved]
  - Spinal disorder [Unknown]
  - Lenticular opacities [Recovering/Resolving]
  - Eye disorder [Unknown]
  - Dyspnoea exertional [Recovered/Resolved]
  - Bladder disorder [Recovered/Resolved]
  - Respiratory tract infection [Recovering/Resolving]
  - Dysuria [Recovered/Resolved]
  - Discomfort [Recovered/Resolved]
  - Constipation [Unknown]
  - Sciatica [Not Recovered/Not Resolved]
  - Rash [Not Recovered/Not Resolved]
  - Urinary tract infection bacterial [Recovered/Resolved]
  - Abdominal adhesions [Unknown]
  - Dyspnoea [Unknown]
  - Malaise [Not Recovered/Not Resolved]
  - Nausea [Unknown]
  - Influenza like illness [Unknown]
  - General physical condition abnormal [Unknown]
  - Discomfort [Unknown]
  - Myalgia [Unknown]
  - Rectal polyp [Unknown]
  - Eye pain [Recovered/Resolved]
  - Arthralgia [Recovering/Resolving]
  - Exercise tolerance decreased [Unknown]
  - Paraesthesia [Unknown]
  - Drug intolerance [Unknown]
  - Upper respiratory tract infection [Unknown]
  - Hypotonic urinary bladder [Recovering/Resolving]
  - Osteosclerosis [Unknown]
  - Osteitis [Recovered/Resolved]
  - Nasal inflammation [Unknown]
  - Urinary incontinence [Recovering/Resolving]
  - Eczema [Recovered/Resolved]
  - Compression fracture [Unknown]
  - Intervertebral disc degeneration [Unknown]
  - Hypoaesthesia [Unknown]
  - Abdominal pain lower [Unknown]
  - Limb discomfort [Unknown]
  - Disease susceptibility [Unknown]
  - Pain in extremity [Recovered/Resolved]

NARRATIVE: CASE EVENT DATE: 20120717
